FAERS Safety Report 4273790-9 (Version None)
Quarter: 2004Q1

REPORT INFORMATION
  Report Type: 
  Country: None (occurrence: None)
  Receive Date: 20040119
  Receipt Date: 20040114
  Transmission Date: 20041129
  Serious: Yes (Hospitalization)
  Sender: FDA-Public Use
  Company Number: WAES 0401USA01022

PATIENT
  Age: 76 Year
  Sex: Male

DRUGS (4)
  1. ASPIRIN [Concomitant]
  2. ZOCOR [Suspect]
     Indication: DYSLIPIDAEMIA
     Route: 048
     Dates: start: 19940101, end: 20020401
  3. ZOCOR [Suspect]
     Route: 048
     Dates: start: 20020401
  4. VITAMINS (UNSPECIFIED) [Concomitant]

REACTIONS (4)
  - ATRIAL FIBRILLATION [None]
  - CYANOSIS [None]
  - MYALGIA [None]
  - PAIN IN EXTREMITY [None]
